FAERS Safety Report 23195298 (Version 1)
Quarter: 2023Q4

REPORT INFORMATION
  Report Type: Spontaneous
  Country: US (occurrence: US)
  Receive Date: 20231117
  Receipt Date: 20231117
  Transmission Date: 20240109
  Serious: No
  Sender: FDA-Public Use
  Company Number: US-MLMSERVICE-20200522-2313547-1

PATIENT
  Age: 89 Year
  Sex: Male

DRUGS (3)
  1. TRUSOPT [Suspect]
     Active Substance: DORZOLAMIDE HYDROCHLORIDE
     Indication: Glaucoma
     Dosage: ONCE IN THE MORNING IN THE LEFT EYE
  2. LOTEPREDNOL ETABONATE [Concomitant]
     Active Substance: LOTEPREDNOL ETABONATE
     Indication: Glaucoma
     Dosage: THREE TIMES A DAY IN THE LEFT EYE
  3. LATANOPROST [Concomitant]
     Active Substance: LATANOPROST
     Dosage: ONCE A NIGHT IN THE LEFT EYE

REACTIONS (1)
  - Inappropriate schedule of product administration [Unknown]
